FAERS Safety Report 12961873 (Version 1)
Quarter: 2016Q4

REPORT INFORMATION
  Report Type: Spontaneous
  Country: US (occurrence: US)
  Receive Date: 20161121
  Receipt Date: 20161121
  Transmission Date: 20170207
  Serious: No
  Sender: FDA-Public Use
  Company Number: US-OSMOTICA_PHARMACEUTICAL_US_LLC-POI0573201600055

PATIENT
  Sex: Female

DRUGS (1)
  1. DIVIGEL [Suspect]
     Active Substance: ESTRADIOL

REACTIONS (3)
  - Skin burning sensation [Unknown]
  - Vulvovaginal burning sensation [None]
  - Anorectal discomfort [None]

NARRATIVE: CASE EVENT DATE: 2015
